FAERS Safety Report 23050613 (Version 1)
Quarter: 2023Q4

REPORT INFORMATION
  Report Type: Spontaneous
  Country: ES (occurrence: ES)
  Receive Date: 20231010
  Receipt Date: 20231010
  Transmission Date: 20240110
  Serious: Yes (Other)
  Sender: FDA-Public Use
  Company Number: ES-SUN PHARMACEUTICAL INDUSTRIES LTD-2023RR-411759

PATIENT
  Age: 43 Year
  Sex: Female

DRUGS (9)
  1. TRABECTEDIN [Suspect]
     Active Substance: TRABECTEDIN
     Indication: Ovarian cancer
     Dosage: 1.1 MILLIGRAM/SQ. METER, EVERY 21 DAYS
     Route: 065
  2. TRABECTEDIN [Suspect]
     Active Substance: TRABECTEDIN
     Dosage: 0.9 MILLIGRAM/SQ. METER
     Route: 065
  3. DOXORUBICIN HYDROCHLORIDE [Suspect]
     Active Substance: DOXORUBICIN HYDROCHLORIDE
     Indication: Ovarian cancer
     Dosage: 30 MILLIGRAM/SQ. METER
     Route: 065
  4. DOXORUBICIN HYDROCHLORIDE [Suspect]
     Active Substance: DOXORUBICIN HYDROCHLORIDE
     Dosage: 25 MILLIGRAM/SQ. METER
     Route: 065
  5. DOXORUBICIN HYDROCHLORIDE [Suspect]
     Active Substance: DOXORUBICIN HYDROCHLORIDE
     Dosage: 40 MILLIGRAM/SQ. METER, EVERY 28 DAYS
  6. CARBOPLATIN [Suspect]
     Active Substance: CARBOPLATIN
     Indication: Ovarian cancer
     Dosage: EVERY 21 DAYS, 5 CYCLES
     Dates: start: 201801, end: 201804
  7. PACLITAXEL [Suspect]
     Active Substance: PACLITAXEL
     Indication: Ovarian cancer
     Dosage: 175 MILLIGRAM/SQ. METER, EVERY 21 DAYS
     Dates: start: 201801
  8. GEMCITABINE [Suspect]
     Active Substance: GEMCITABINE
     Indication: Ovarian cancer
     Dosage: 1000 MILLIGRAM/SQ. METER, DAY 1 AND 8, EVERY 21 DAYS, 26 CYCLES
     Route: 065
     Dates: start: 201805, end: 201912
  9. BEVACIZUMAB [Suspect]
     Active Substance: BEVACIZUMAB
     Indication: Ovarian cancer
     Dosage: 15 MILLIGRAM/SQ. METER, DAY 1,EVERY 21 DAYS, 26 CYCLES
     Route: 065
     Dates: start: 201805, end: 201912

REACTIONS (8)
  - Disease progression [Unknown]
  - Lymphadenopathy [Unknown]
  - Thrombocytopenia [Unknown]
  - Anaemia [Unknown]
  - Vomiting [Unknown]
  - Asthenia [Unknown]
  - Decreased appetite [Unknown]
  - Neurotoxicity [Unknown]
